FAERS Safety Report 8236925-9 (Version None)
Quarter: 2012Q1

REPORT INFORMATION
  Report Type: 
  Country: None (occurrence: None)
  Receive Date: 20120327
  Receipt Date: 20120314
  Transmission Date: 20120608
  Serious: Yes (Hospitalization)
  Sender: FDA-Public Use
  Company Number: PHHY2012FR023344

PATIENT
  Sex: Female

DRUGS (5)
  1. XOLAIR [Suspect]
     Dosage: UNK UKN, UNK
     Dates: start: 20110201
  2. SINGULAIR [Concomitant]
     Dates: start: 20090801
  3. FLUTICASONE PROPIONATE/SALMETEROL [Concomitant]
     Dates: start: 20090801
  4. DIPROSONE [Concomitant]
     Dates: start: 20090801
  5. NEORAL [Suspect]
     Dosage: 100 MG, QD
     Route: 048
     Dates: start: 20111001

REACTIONS (1)
  - MYOSITIS [None]
